FAERS Safety Report 5738423-0 (Version None)
Quarter: 2008Q2

REPORT INFORMATION
  Report Type: 
  Country: None (occurrence: None)
  Receive Date: 20080513
  Receipt Date: 20080505
  Transmission Date: 20081010
  Serious: Yes (Hospitalization, Other)
  Sender: FDA-Public Use
  Company Number: 2007SP004218

PATIENT
  Age: 46 Year
  Sex: Female

DRUGS (3)
  1. PEG-INTRON [Suspect]
     Indication: HEPATITIS C
     Dosage: ;SC
     Route: 058
     Dates: start: 20061227, end: 20071124
  2. RIBAVIRIN [Suspect]
     Indication: HEPATITIS C
     Dosage: ;PO
     Route: 048
     Dates: start: 20061227, end: 20071124
  3. LEVOXYL [Concomitant]

REACTIONS (35)
  - ABDOMINAL PAIN UPPER [None]
  - ANAEMIA [None]
  - ANIMAL BITE [None]
  - BLOOD URIC ACID INCREASED [None]
  - CHEST PAIN [None]
  - CHOLELITHIASIS [None]
  - CONFUSIONAL STATE [None]
  - DEHYDRATION [None]
  - FEELING ABNORMAL [None]
  - FIBROMYALGIA [None]
  - HEADACHE [None]
  - HEART RATE INCREASED [None]
  - HEPATIC CIRRHOSIS [None]
  - HEPATOMEGALY [None]
  - HYPERTENSION [None]
  - IRRITABILITY [None]
  - LIVER DISORDER [None]
  - LYMPHADENOPATHY [None]
  - PLATELET COUNT DECREASED [None]
  - PYREXIA [None]
  - RAYNAUD'S PHENOMENON [None]
  - RED CELL DISTRIBUTION WIDTH INCREASED [None]
  - RETINAL DETACHMENT [None]
  - RHEUMATOID ARTHRITIS [None]
  - SCAR [None]
  - SINUSITIS [None]
  - SLEEP DISORDER [None]
  - SPLENOMEGALY [None]
  - SPUTUM DISCOLOURED [None]
  - SWELLING [None]
  - THYROID FUNCTION TEST ABNORMAL [None]
  - TOOTHACHE [None]
  - VOMITING [None]
  - WEIGHT INCREASED [None]
  - WHITE BLOOD CELL COUNT DECREASED [None]
